FAERS Safety Report 13349560 (Version 1)
Quarter: 2017Q1

REPORT INFORMATION
  Report Type: Report from Study
  Country: US (occurrence: US)
  Receive Date: 20170320
  Receipt Date: 20170320
  Transmission Date: 20170428
  Serious: No
  Sender: FDA-Public Use
  Company Number: US-009507513-1703USA002587

PATIENT
  Sex: Female

DRUGS (1)
  1. NEXPLANON [Suspect]
     Active Substance: ETONOGESTREL
     Route: 059

REACTIONS (6)
  - Depressed mood [Unknown]
  - Eating disorder [Unknown]
  - Abdominal distension [Unknown]
  - Amenorrhoea [Unknown]
  - Ulcer [Unknown]
  - Migraine [Unknown]
